FAERS Safety Report 15285256 (Version 1)
Quarter: 2018Q3

REPORT INFORMATION
  Report Type: Spontaneous
  Country: US (occurrence: US)
  Receive Date: 20180801
  Receipt Date: 20180801
  Transmission Date: 20181010
  Serious: Yes (Hospitalization)
  Sender: FDA-Public Use
  Company Number: None

PATIENT
  Age: 60 Year
  Sex: Female

DRUGS (1)
  1. PROLIA [Suspect]
     Active Substance: DENOSUMAB
     Indication: HYPERTENSION
     Dosage: ?          OTHER FREQUENCY:6 MONTHS ;?
     Route: 058
     Dates: start: 20180208

REACTIONS (1)
  - Thyroid cancer [None]
